FAERS Safety Report 6711457-5 (Version None)
Quarter: 2010Q2

REPORT INFORMATION
  Report Type: 
  Country: None (occurrence: None)
  Receive Date: 20100505
  Receipt Date: 20100423
  Transmission Date: 20101027
  Serious: Yes (Other)
  Sender: FDA-Public Use
  Company Number: SG-PFIZER INC-2010052587

PATIENT
  Age: 44 Year
  Sex: Female

DRUGS (3)
  1. LINCOMYCIN HCL [Suspect]
  2. PANADOL [Suspect]
  3. VANCOMYCIN [Suspect]

REACTIONS (1)
  - DYSPNOEA [None]
